FAERS Safety Report 5359955-3 (Version None)
Quarter: 2007Q2

REPORT INFORMATION
  Report Type: 
  Country: None (occurrence: None)
  Receive Date: 20070530
  Receipt Date: 20070201
  Transmission Date: 20071010
  Serious: No
  Sender: FDA-Public Use
  Company Number: 2007PV029446

PATIENT
  Age: 69 Year
  Sex: Female

DRUGS (4)
  1. BYETTA [Suspect]
     Indication: DIABETES MELLITUS NON-INSULIN-DEPENDENT
     Dosage: 10;5 MCG;QD;BID;SC
     Route: 058
     Dates: start: 20061020, end: 20061119
  2. BYETTA [Suspect]
     Indication: DIABETES MELLITUS NON-INSULIN-DEPENDENT
     Dosage: 10;5 MCG;QD;BID;SC
     Route: 058
     Dates: start: 20061120, end: 20070101
  3. BYETTA [Suspect]
     Indication: DIABETES MELLITUS NON-INSULIN-DEPENDENT
     Dosage: 10;5 MCG;QD;BID;SC
     Route: 058
     Dates: start: 20070101
  4. METFORMIN HCL [Concomitant]

REACTIONS (5)
  - BLOOD GLUCOSE DECREASED [None]
  - CHILLS [None]
  - FATIGUE [None]
  - NAUSEA [None]
  - SALIVARY HYPERSECRETION [None]
